FAERS Safety Report 7538160-6 (Version None)
Quarter: 2011Q2

REPORT INFORMATION
  Report Type: 
  Country: None (occurrence: None)
  Receive Date: 20110609
  Receipt Date: 20011022
  Transmission Date: 20111010
  Serious: Yes (Death)
  Sender: FDA-Public Use
  Company Number: PHBS2001CA09959

PATIENT
  Sex: Male

DRUGS (7)
  1. PERCOCET [Concomitant]
  2. CLOZAPINE [Suspect]
     Indication: SCHIZOPHRENIA, PARANOID TYPE
     Dosage: 500 MG, QD
     Route: 048
     Dates: start: 20010301
  3. COLACE [Concomitant]
  4. DUNAGESIC [Concomitant]
  5. CLONAZEPAM [Concomitant]
  6. SEVEKOT [Concomitant]
  7. NICOTINE [Concomitant]
     Route: 062

REACTIONS (7)
  - BRONCHIOLOALVEOLAR CARCINOMA [None]
  - COUGH [None]
  - CHEST PAIN [None]
  - DYSPNOEA [None]
  - METASTASES TO LIVER [None]
  - LYMPHADENOPATHY MEDIASTINAL [None]
  - WEIGHT DECREASED [None]
